FAERS Safety Report 9580230 (Version 2)
Quarter: 2013Q4

REPORT INFORMATION
  Report Type: Spontaneous
  Country: GB (occurrence: SL)
  Receive Date: 20131002
  Receipt Date: 20131002
  Transmission Date: 20140711
  Serious: Yes (Other)
  Sender: FDA-Public Use
  Company Number: GB-ROCHE-240830

PATIENT
  Age: 24 Year
  Sex: Male

DRUGS (1)
  1. LARIAM [Suspect]
     Indication: MALARIA PROPHYLAXIS
     Route: 048

REACTIONS (3)
  - Gun shot wound [Unknown]
  - Hallucination [Unknown]
  - Nightmare [Unknown]
